FAERS Safety Report 17160766 (Version 2)
Quarter: 2025Q1

REPORT INFORMATION
  Report Type: Spontaneous
  Country: IT (occurrence: IT)
  Receive Date: 20191216
  Receipt Date: 20250102
  Transmission Date: 20250409
  Serious: Yes (Death, Other)
  Sender: GILEAD
  Company Number: IT-GILEAD-2019-0442565

PATIENT
  Age: 64 Year
  Sex: Female

DRUGS (15)
  1. ZYDELIG [Suspect]
     Active Substance: IDELALISIB
     Indication: Chronic lymphocytic leukaemia
     Dosage: 100 MG, BID (STARTED AT A REDUCED DOSE)
     Route: 048
     Dates: end: 201609
  2. ZYDELIG [Suspect]
     Active Substance: IDELALISIB
     Dosage: 150 MG, QD
     Route: 048
     Dates: start: 201510
  3. ZYDELIG [Suspect]
     Active Substance: IDELALISIB
     Dosage: 150 MG, BID (AS MONOTHERAPY)
     Route: 048
     Dates: start: 201609
  4. MEFLOQUINE [Suspect]
     Active Substance: MEFLOQUINE
     Indication: Product used for unknown indication
     Route: 065
     Dates: start: 201707
  5. BENDAMUSTINE [Suspect]
     Active Substance: BENDAMUSTINE
     Indication: Chronic lymphocytic leukaemia
     Route: 065
  6. CARMUSTINE [Suspect]
     Active Substance: CARMUSTINE
     Indication: Product used for unknown indication
     Route: 065
  7. CYCLOPHOSPHAMIDE [Suspect]
     Active Substance: CYCLOPHOSPHAMIDE
     Indication: Chronic lymphocytic leukaemia
     Route: 065
  8. CYTARABINE [Suspect]
     Active Substance: CYTARABINE
     Indication: Product used for unknown indication
     Route: 065
  9. ETOPOSIDE [Suspect]
     Active Substance: ETOPOSIDE
     Indication: Product used for unknown indication
     Route: 065
  10. FLUDARABINE [Suspect]
     Active Substance: FLUDARABINE PHOSPHATE
     Indication: Chronic lymphocytic leukaemia
     Route: 065
  11. MELPHALAN [Suspect]
     Active Substance: MELPHALAN
     Indication: Product used for unknown indication
     Route: 065
  12. OFATUMUMAB [Suspect]
     Active Substance: OFATUMUMAB
     Indication: Chronic lymphocytic leukaemia
     Route: 065
  13. OFATUMUMAB [Suspect]
     Active Substance: OFATUMUMAB
     Route: 065
  14. RITUXIMAB [Suspect]
     Active Substance: RITUXIMAB
     Indication: Chronic lymphocytic leukaemia
     Route: 065
     Dates: start: 201510, end: 201512
  15. MIRTAZAPINE [Concomitant]
     Active Substance: MIRTAZAPINE
     Dates: start: 201707

REACTIONS (13)
  - Progressive multifocal leukoencephalopathy [Fatal]
  - Status epilepticus [Fatal]
  - Epilepsia partialis continua [Unknown]
  - Immune reconstitution inflammatory syndrome [Unknown]
  - JC virus infection [Unknown]
  - Disease progression [Unknown]
  - Colitis [Recovered/Resolved]
  - Anosognosia [Unknown]
  - Ataxia [Unknown]
  - Muscular weakness [Unknown]
  - Hemianopia [Unknown]
  - Toxicity to various agents [Unknown]
  - Rash [Unknown]

NARRATIVE: CASE EVENT DATE: 20160901
